FAERS Safety Report 17820442 (Version 2)
Quarter: 2020Q2

REPORT INFORMATION
  Report Type: Report from Study
  Country: DE (occurrence: DE)
  Receive Date: 20200525
  Receipt Date: 20200612
  Transmission Date: 20200714
  Serious: Yes (Death, Hospitalization)
  Sender: FDA-Public Use
  Company Number: DE-SA-2020SA132616

PATIENT

DRUGS (8)
  1. AFLIBERCEPT [Suspect]
     Active Substance: AFLIBERCEPT
     Dosage: 4 MG/KG, QCY
     Route: 042
     Dates: start: 20190625, end: 20190625
  2. LEUCOVORIN [FOLINIC ACID] [Concomitant]
     Active Substance: LEUCOVORIN
     Indication: COLORECTAL CANCER
     Dosage: UNK UNK, QCY
     Route: 042
     Dates: start: 20190723, end: 20190723
  3. IRINOTECAN [Concomitant]
     Active Substance: IRINOTECAN
     Indication: COLORECTAL CANCER
     Dosage: UNK UNK, QCY
     Route: 042
     Dates: start: 20190723, end: 20190723
  4. LEUCOVORIN [FOLINIC ACID] [Concomitant]
     Active Substance: LEUCOVORIN
     Dosage: UNK UNK, QCY
     Route: 042
     Dates: start: 20190625, end: 20190625
  5. AFLIBERCEPT [Suspect]
     Active Substance: AFLIBERCEPT
     Indication: COLORECTAL CANCER METASTATIC
     Dosage: 204 MG, QCY
     Route: 042
     Dates: start: 20190723, end: 20190723
  6. IRINOTECAN [Concomitant]
     Active Substance: IRINOTECAN
     Dosage: UNK UNK, QCY
     Route: 042
     Dates: start: 20190625, end: 20190625
  7. 5-FU [FLUOROURACIL] [Concomitant]
     Active Substance: FLUOROURACIL
     Indication: COLORECTAL CANCER
     Dosage: UNK UNK, QCY
     Route: 042
     Dates: start: 20190723, end: 20190723
  8. 5-FU [FLUOROURACIL] [Concomitant]
     Active Substance: FLUOROURACIL
     Dosage: UNK UNK, QCY
     Route: 042
     Dates: start: 20190625, end: 20190625

REACTIONS (1)
  - Embolism [Fatal]
